FAERS Safety Report 6757622-2 (Version None)
Quarter: 2010Q2

REPORT INFORMATION
  Report Type: 
  Country: None (occurrence: None)
  Receive Date: 20100602
  Receipt Date: 20100305
  Transmission Date: 20101027
  Serious: Yes (Hospitalization, Other)
  Sender: FDA-Public Use
  Company Number: 2010SP014796

PATIENT
  Age: 36 Year
  Sex: Female
  Weight: 340 kg

DRUGS (4)
  1. NUVARING [Suspect]
     Indication: CONTRACEPTION
     Dosage: ;QM; VAG
     Route: 067
     Dates: start: 20050801, end: 20061001
  2. NUVARING [Suspect]
     Indication: CONTRACEPTION
     Dosage: ;QM; VAG
     Route: 067
     Dates: start: 20071101, end: 20080303
  3. ALEVE (CAPLET) [Concomitant]
  4. TYLENOL [Concomitant]

REACTIONS (17)
  - ABORTION MISSED [None]
  - ACTIVATED PARTIAL THROMBOPLASTIN TIME SHORTENED [None]
  - ANXIETY [None]
  - BACK PAIN [None]
  - BENIGN HYDATIDIFORM MOLE [None]
  - BLOOD CALCIUM DECREASED [None]
  - BLOOD GLUCOSE INCREASED [None]
  - BLOOD PH INCREASED [None]
  - DEEP VEIN THROMBOSIS [None]
  - DRUG EXPOSURE DURING PREGNANCY [None]
  - FOETAL CHROMOSOME ABNORMALITY [None]
  - HEADACHE [None]
  - INTERNATIONAL NORMALISED RATIO DECREASED [None]
  - MULTIPLE INJURIES [None]
  - PULMONARY EMBOLISM [None]
  - THROMBOPHLEBITIS [None]
  - THROMBOSIS [None]
